FAERS Safety Report 9115941 (Version 1)
Quarter: 2013Q1

REPORT INFORMATION
  Report Type: Spontaneous
  Country: GB (occurrence: GB)
  Receive Date: 20130225
  Receipt Date: 20130225
  Transmission Date: 20140127
  Serious: Yes (Other)
  Sender: FDA-Public Use
  Company Number: GB-ELI_LILLY_AND_COMPANY-GB201302004572

PATIENT
  Age: 57 Year
  Sex: Female
  Weight: 62.1 kg

DRUGS (14)
  1. FLUOXETINE [Suspect]
     Indication: DEPRESSION
     Dosage: 20 MG, UNKNOWN
     Route: 048
  2. ONDANSETRON [Concomitant]
     Indication: ANTIEMETIC SUPPORTIVE CARE
     Dosage: 4 MG, UNKNOWN
     Route: 042
     Dates: start: 20121101, end: 20121101
  3. ATORVASTATIN [Concomitant]
     Dosage: 10 MG, UNKNOWN
     Route: 048
  4. ATRACURIUM [Concomitant]
  5. DEXAMETHASONE [Concomitant]
  6. EPHEDRINE [Concomitant]
     Indication: INTRAOPERATIVE CARE
  7. FENTANYL [Concomitant]
  8. GENTAMICIN [Concomitant]
  9. MANEVAC [Concomitant]
  10. METRONIDAZOLE [Concomitant]
  11. NEOSTIGMINE [Concomitant]
     Indication: INTRAOPERATIVE CARE
  12. PROPOFOL [Concomitant]
  13. RANITIDINE [Concomitant]
  14. SEVOFLURANE [Concomitant]
     Indication: GENERAL ANAESTHESIA

REACTIONS (6)
  - Serotonin syndrome [Recovered/Resolved]
  - Coma scale abnormal [Recovered/Resolved]
  - Procedural hypertension [Recovered/Resolved]
  - Tachycardia [Recovered/Resolved]
  - Pyrexia [Recovered/Resolved]
  - Tremor [Recovered/Resolved]
